FAERS Safety Report 12447668 (Version 1)
Quarter: 2016Q2

REPORT INFORMATION
  Report Type: Spontaneous
  Country: JP (occurrence: JP)
  Receive Date: 20160608
  Receipt Date: 20160608
  Transmission Date: 20160815
  Serious: Yes (Other)
  Sender: FDA-Public Use
  Company Number: JP-BAYER-2016-109289

PATIENT
  Age: 38 Year
  Sex: Female

DRUGS (2)
  1. HEPARIN CALCIUM [Concomitant]
     Active Substance: HEPARIN CALCIUM
     Indication: ANTIPHOSPHOLIPID SYNDROME
     Dosage: 5000 DF, BID, AT 7 WEEKS OF GESTATION
     Route: 058
  2. ACETYLSALICYLIC ACID({=100 MG) [Suspect]
     Active Substance: ASPIRIN
     Indication: ANTIPHOSPHOLIPID SYNDROME
     Dosage: 100 MG, QD
     Route: 048

REACTIONS (3)
  - Off label use [None]
  - Abortion missed [None]
  - Maternal exposure during pregnancy [None]
